FAERS Safety Report 9680535 (Version 1)
Quarter: 2013Q4

REPORT INFORMATION
  Report Type: Spontaneous
  Country: US (occurrence: US)
  Receive Date: 20131111
  Receipt Date: 20131111
  Transmission Date: 20140711
  Serious: No
  Sender: FDA-Public Use
  Company Number: US-PFIZER INC-2013317653

PATIENT
  Age: 60 Year
  Sex: Female
  Weight: 56.24 kg

DRUGS (3)
  1. CADUET [Suspect]
     Indication: BLOOD PRESSURE ABNORMAL
     Dosage: AMLODIPINE BESYLATE 5MG/ ATORVASTATIN CALCIUM 40MG, UNK
  2. CADUET [Suspect]
     Indication: BLOOD CHOLESTEROL INCREASED
     Dosage: AMLODIPINE BESYLATE 5MG/ ATORVASTATIN CALCIUM 80MG, UNK
  3. ASPIRIN [Concomitant]
     Dosage: 81 MG, DAILY

REACTIONS (1)
  - Drug ineffective [Unknown]
